FAERS Safety Report 5949445-9 (Version None)
Quarter: 2008Q4

REPORT INFORMATION
  Report Type: 
  Country: None (occurrence: None)
  Receive Date: 20081112
  Receipt Date: 20081103
  Transmission Date: 20090506
  Serious: Yes (Other)
  Sender: FDA-Public Use
  Company Number: PHHY2008FR27123

PATIENT
  Age: 83 Year
  Sex: Female

DRUGS (2)
  1. CO-TAREG [Suspect]
     Indication: HYPERTENSION
     Dosage: 80/12.5 MG QD
  2. CO-TAREG [Suspect]
     Dosage: 160/25 MG BID

REACTIONS (3)
  - DIARRHOEA [None]
  - DIVERTICULITIS [None]
  - NAUSEA [None]
